FAERS Safety Report 10339659 (Version 2)
Quarter: 2014Q1

REPORT INFORMATION
  Report Type: Spontaneous
  Country: US (occurrence: None)
  Receive Date: 20120817
  Receipt Date: 20130815
  Transmission Date: 20141002
  Serious: Yes (Hospitalization, Other)
  Sender: FDA-Public Use
  Company Number: ADR-2012-00471

PATIENT
  Sex: Female

DRUGS (2)
  1. LIORESAL INTRATHECAL (BACLOFEN INJECTION) 2000 MCG/ML [Suspect]
     Indication: MUSCLE SPASTICITY
     Dosage: -200 MCG/DAY
  2. LIORESAL INTRATHECAL (BACLOFEN INJECTION) 2000 MCG/ML [Suspect]
     Indication: MULTIPLE SCLEROSIS
     Dosage: -200 MCG/DAY

REACTIONS (4)
  - Convulsion [None]
  - Muscle spasticity [None]
  - No therapeutic response [None]
  - Overdose [None]
